FAERS Safety Report 24374132 (Version 1)
Quarter: 2024Q3

REPORT INFORMATION
  Report Type: Spontaneous
  Country: US (occurrence: None)
  Receive Date: 20240927
  Receipt Date: 20240927
  Transmission Date: 20241017
  Serious: Yes (Other)
  Sender: Public
  Company Number: None

PATIENT
  Age: 68 Year
  Sex: Female
  Weight: 60.75 kg

DRUGS (8)
  1. ALAWAY [Suspect]
     Active Substance: KETOTIFEN FUMARATE
     Indication: Conjunctivitis allergic
     Dosage: 1 DROP TWICE A DAY OPTHALMIC
     Route: 047
  2. LEVOTHYROXINE [Concomitant]
     Active Substance: LEVOTHYROXINE\LEVOTHYROXINE SODIUM
  3. LIOTHYRONINE [Concomitant]
     Active Substance: LIOTHYRONINE
  4. FISH OIL\OMEGA-3 FATTY ACIDS [Concomitant]
     Active Substance: FISH OIL\OMEGA-3 FATTY ACIDS
  5. VITAMIN D [Concomitant]
     Active Substance: VITAMIN D NOS
  6. Tumeric Root Extract 95% Curcuminoids [Concomitant]
  7. SELENIUM [Concomitant]
     Active Substance: SELENIUM
  8. Thorne Ferrasorb (Essential Nutrients with iron) [Concomitant]

REACTIONS (10)
  - Instillation site irritation [None]
  - Instillation site irritation [None]
  - Instillation site pruritus [None]
  - Instillation site erythema [None]
  - Sensation of foreign body [None]
  - Lacrimation increased [None]
  - Instillation site swelling [None]
  - Migraine [None]
  - Eye inflammation [None]
  - Blister [None]
